FAERS Safety Report 20529662 (Version 1)
Quarter: 2022Q1

REPORT INFORMATION
  Report Type: Report from Study
  Country: US (occurrence: US)
  Receive Date: 20220301
  Receipt Date: 20220301
  Transmission Date: 20220424
  Serious: No
  Sender: FDA-Public Use
  Company Number: US-NOVARTISTESTPH-NVSC2022US046868

PATIENT
  Sex: Male

DRUGS (1)
  1. COSENTYX [Suspect]
     Active Substance: SECUKINUMAB
     Indication: Psoriasis
     Dosage: 300 MG, ONCE A WEEK FOR 5 WEEKS AND THEN Q 4
     Route: 058

REACTIONS (4)
  - Oral herpes [Recovering/Resolving]
  - Psoriasis [Recovering/Resolving]
  - Paraesthesia oral [Recovering/Resolving]
  - Erythema [Recovering/Resolving]
